FAERS Safety Report 7869416-5 (Version None)
Quarter: 2011Q4

REPORT INFORMATION
  Report Type: 
  Country: None (occurrence: None)
  Receive Date: 20111028
  Receipt Date: 20111028
  Transmission Date: 20120403
  Serious: No
  Sender: FDA-Public Use
  Company Number: None

PATIENT
  Age: 56 Year
  Sex: Female

DRUGS (2)
  1. SAPHRIS [Suspect]
  2. LITHIUM CITRATE [Concomitant]

REACTIONS (1)
  - TOOTH DISCOLOURATION [None]
